FAERS Safety Report 9757300 (Version 2)
Quarter: 2014Q1

REPORT INFORMATION
  Report Type: Report from Study
  Country: ES (occurrence: ES)
  Receive Date: 20131214
  Receipt Date: 20140101
  Transmission Date: 20141002
  Serious: Yes (Death, Hospitalization)
  Sender: FDA-Public Use
  Company Number: ES-ROCHE-1319159

PATIENT
  Sex: Female
  Weight: 60 kg

DRUGS (6)
  1. BEVACIZUMAB [Suspect]
     Indication: COLON CANCER
     Dosage: LAST CYCLE STARTED ON 22/NOV/2013, DOSE: 300 MG (5MG/KG).?LAST DOSE PRIOR TO SAE: 22/NOV/2013
     Route: 042
     Dates: start: 20131122, end: 20131128
  2. OXALIPLATIN [Suspect]
     Indication: COLON CANCER
     Dosage: LAST CYCLE START DATE: 22/NOV/2013?DOSE: 130MG (85 MG/M2)?LAST DOSE PRIOR TO SAE: 22/NOV/2013
     Route: 042
     Dates: start: 20131122, end: 20131128
  3. FLUOROURACIL [Suspect]
     Indication: COLON CANCER
     Dosage: START DATE OF LAST DOSE: 22/NOV/2013?DOSE: 620MG( 400MG/M2)?LAST DOSE PRIOR TO SAE : 22/NOV/2013
     Route: 040
     Dates: start: 20131122, end: 20131128
  4. FLUOROURACIL [Suspect]
     Dosage: START DATE OF LAST CYCLE: 22/NOV/2013?DOSE: 3700MG?LAST DOSE PRIOR TO SAE: 22/NOV/2013
     Route: 042
     Dates: start: 20131122, end: 20131128
  5. FOLINIC ACID [Suspect]
     Indication: COLON CANCER
     Route: 042
     Dates: start: 20131122, end: 20131128
  6. PARACETAMOL [Concomitant]

REACTIONS (2)
  - Sepsis [Fatal]
  - Febrile neutropenia [Fatal]
